FAERS Safety Report 7221739-9 (Version None)
Quarter: 2011Q1

REPORT INFORMATION
  Report Type: 
  Country: None (occurrence: None)
  Receive Date: 20110111
  Receipt Date: 20101220
  Transmission Date: 20110831
  Serious: No
  Sender: FDA-Public Use
  Company Number: DL2010-0996

PATIENT
  Age: 27 Year
  Sex: Female

DRUGS (4)
  1. MISOPROSTOL [Suspect]
     Dosage: 800 MCG, BUCCAL; 800 MCG, BUCCAL, TWICE ON 09082010
     Route: 002
     Dates: start: 20100825
  2. MISOPROSTOL [Suspect]
     Dosage: 800 MCG, BUCCAL; 800 MCG, BUCCAL, TWICE ON 09082010
     Route: 002
     Dates: start: 20100908
  3. DOXYCYCLINE [Concomitant]
  4. MIFEPRISTONE (MIFEPREX) [Suspect]
     Indication: ABORTION INDUCED
     Dosage: 200 MG, ORAL
     Route: 048
     Dates: start: 20100824

REACTIONS (4)
  - ABORTION INCOMPLETE [None]
  - PAIN [None]
  - MUSCLE SPASMS [None]
  - HAEMORRHAGE [None]
